FAERS Safety Report 9437830 (Version 1)
Quarter: 2013Q3

REPORT INFORMATION
  Report Type: Spontaneous
  Country: US (occurrence: US)
  Receive Date: 20130802
  Receipt Date: 20130802
  Transmission Date: 20140515
  Serious: Yes (Hospitalization, Other)
  Sender: FDA-Public Use
  Company Number: US-ASTRAZENECA-2013SE58153

PATIENT
  Age: 47 Year
  Sex: Female
  Weight: 68 kg

DRUGS (7)
  1. NEXIUM [Suspect]
     Indication: GASTROOESOPHAGEAL REFLUX DISEASE
     Route: 048
     Dates: start: 2001, end: 2003
  2. NEXIUM [Suspect]
     Indication: GASTROOESOPHAGEAL REFLUX DISEASE
     Route: 048
     Dates: start: 2003, end: 201303
  3. TRIAMTERENE-HCTZ [Concomitant]
     Indication: GASTROOESOPHAGEAL REFLUX DISEASE
     Dosage: 75-50 DAILY
     Route: 048
     Dates: start: 1980
  4. CYMBALTA [Concomitant]
     Indication: AFFECTIVE DISORDER
     Route: 048
     Dates: start: 1980
  5. NORCO [Concomitant]
     Indication: PAIN
     Dosage: 4 TO 6 TABLETS PRN
     Route: 048
     Dates: start: 2006
  6. TUMS [Concomitant]
     Indication: GASTROOESOPHAGEAL REFLUX DISEASE
     Route: 048
     Dates: start: 20130712
  7. LANSOPRAZOLE [Concomitant]
     Indication: GASTROOESOPHAGEAL REFLUX DISEASE
     Dosage: 3 TO 4 TABLETS DAILY
     Route: 048
     Dates: start: 201303

REACTIONS (14)
  - Intervertebral disc protrusion [Unknown]
  - Spinal deformity [Unknown]
  - Nerve injury [Unknown]
  - Umbilical hernia [Recovered/Resolved]
  - Vascular rupture [Unknown]
  - Large intestine polyp [Unknown]
  - Dyspepsia [Unknown]
  - Arthritis [Unknown]
  - Body height decreased [Unknown]
  - Amnesia [Unknown]
  - Anxiety [Unknown]
  - Muscular weakness [Unknown]
  - Off label use [Unknown]
  - Intentional drug misuse [Unknown]
